FAERS Safety Report 24665162 (Version 2)
Quarter: 2025Q2

REPORT INFORMATION
  Report Type: Spontaneous
  Country: DE (occurrence: DE)
  Receive Date: 20241126
  Receipt Date: 20250429
  Transmission Date: 20250717
  Serious: Yes (Hospitalization, Other)
  Sender: MERCK SHARP & DOHME LLC
  Company Number: DE-009507513-2411DEU009770

PATIENT
  Age: 80 Year
  Sex: Female

DRUGS (2)
  1. PEMBROLIZUMAB [Suspect]
     Active Substance: PEMBROLIZUMAB
     Indication: Endometrial cancer
     Dates: start: 202409, end: 2024
  2. LENVATINIB MESYLATE [Suspect]
     Active Substance: LENVATINIB MESYLATE
     Indication: Endometrial cancer
     Dates: start: 2024

REACTIONS (2)
  - Hypothyroidism [Not Recovered/Not Resolved]
  - Ascites [Unknown]

NARRATIVE: CASE EVENT DATE: 20240101
